FAERS Safety Report 9054309 (Version 1)
Quarter: 2013Q1

REPORT INFORMATION
  Report Type: Spontaneous
  Country: EC (occurrence: EC)
  Receive Date: 20130208
  Receipt Date: 20130208
  Transmission Date: 20140127
  Serious: Yes (Hospitalization)
  Sender: FDA-Public Use
  Company Number: PHHY2013EC012255

PATIENT
  Sex: Male

DRUGS (2)
  1. EXFORGE HCT [Suspect]
     Dosage: 1 DF (160 MG VALS, 5 MG AMLO AND 12.5 MG HCT), QD
     Route: 048
     Dates: start: 2012, end: 201211
  2. TROKEN [Concomitant]
     Dosage: UNK
     Dates: end: 201211

REACTIONS (2)
  - Cardiac valve disease [Recovering/Resolving]
  - Myocardial infarction [Recovering/Resolving]
